FAERS Safety Report 6366788-8 (Version None)
Quarter: 2009Q3

REPORT INFORMATION
  Report Type: 
  Country: None (occurrence: None)
  Receive Date: 20090921
  Receipt Date: 20090910
  Transmission Date: 20100115
  Serious: Yes (Hospitalization, Other)
  Sender: FDA-Public Use
  Company Number: US-ROCHE-614037

PATIENT
  Sex: Male
  Weight: 56.7 kg

DRUGS (5)
  1. CAPECITABINE [Suspect]
     Indication: COLORECTAL CANCER
     Route: 048
     Dates: start: 20080910, end: 20090801
  2. PREDNISONE [Concomitant]
  3. SPIRIVA [Concomitant]
  4. THEOPHYLLINE [Concomitant]
  5. ALBUTEROL [Concomitant]

REACTIONS (4)
  - BLISTER [None]
  - COLLAPSE OF LUNG [None]
  - PAIN IN EXTREMITY [None]
  - SKIN DISCOLOURATION [None]
